FAERS Safety Report 5488865-6 (Version None)
Quarter: 2007Q4

REPORT INFORMATION
  Report Type: 
  Country: None (occurrence: None)
  Receive Date: 20071017
  Receipt Date: 20071005
  Transmission Date: 20080405
  Serious: Yes (Other)
  Sender: FDA-Public Use
  Company Number: US-PFIZER INC-2007084868

PATIENT
  Sex: Male
  Weight: 86.363 kg

DRUGS (6)
  1. CHANTIX [Suspect]
     Indication: SMOKING CESSATION THERAPY
  2. NEXIUM [Suspect]
  3. ALPRAZOLAM [Concomitant]
  4. ADVAIR DISKUS 100/50 [Concomitant]
  5. ALBUTEROL [Concomitant]
  6. SALBUTAMOL [Concomitant]

REACTIONS (8)
  - ABNORMAL DREAMS [None]
  - ASTHMA [None]
  - BRONCHOSPASM [None]
  - DEHYDRATION [None]
  - DIARRHOEA [None]
  - DYSPEPSIA [None]
  - MIGRAINE [None]
  - POLYP [None]
